FAERS Safety Report 22075891 (Version 1)
Quarter: 2023Q1

REPORT INFORMATION
  Report Type: Spontaneous
  Country: JP (occurrence: JP)
  Receive Date: 20230308
  Receipt Date: 20230308
  Transmission Date: 20230417
  Serious: Yes (Death, Hospitalization, Other)
  Sender: FDA-Public Use
  Company Number: JP-TAIHO-2023-000443

PATIENT
  Age: 81 Year
  Sex: Male
  Weight: 68.9 kg

DRUGS (2)
  1. ABRAXANE [Suspect]
     Active Substance: PACLITAXEL
     Indication: Metastatic gastric cancer
     Dosage: 100 MG X 2/MONTH; 2 DOSING DAYS DAILY DOSE: 100 MILLIGRAM(S)
     Route: 041
     Dates: start: 20221209, end: 20230108
  2. CYRAMZA [Suspect]
     Active Substance: RAMUCIRUMAB
     Indication: Metastatic gastric cancer
     Dosage: 370 MG X 2/MONTH; 2 DOSING DAYS DAILY DOSE: 370 MILLIGRAM(S)
     Route: 051
     Dates: start: 20221209, end: 20230108

REACTIONS (4)
  - Febrile neutropenia [Fatal]
  - Proteinuria [Not Recovered/Not Resolved]
  - Infection [Unknown]
  - Disseminated intravascular coagulation [Unknown]

NARRATIVE: CASE EVENT DATE: 20221226
